FAERS Safety Report 9915993 (Version 2)
Quarter: 2014Q2

REPORT INFORMATION
  Report Type: Spontaneous
  Country: IT (occurrence: IT)
  Receive Date: 20140221
  Receipt Date: 20140407
  Transmission Date: 20141212
  Serious: Yes (Other)
  Sender: FDA-Public Use
  Company Number: IT-MYLANLABS-2014S1002892

PATIENT
  Age: 63 Year
  Sex: Female
  Weight: 55 kg

DRUGS (1)
  1. PACLITAXEL [Suspect]
     Indication: PRODUCT USED FOR UNKNOWN INDICATION
     Dosage: 80 MG TOTAL
     Route: 042
     Dates: start: 20140121, end: 20140121

REACTIONS (2)
  - Dysphagia [Recovered/Resolved]
  - Ankyloglossia acquired [Recovered/Resolved]
